FAERS Safety Report 25426770 (Version 1)
Quarter: 2025Q2

REPORT INFORMATION
  Report Type: Spontaneous
  Country: GB (occurrence: GB)
  Receive Date: 20250612
  Receipt Date: 20250612
  Transmission Date: 20250716
  Serious: Yes (Other)
  Sender: TEVA
  Company Number: None

PATIENT
  Age: 56 Year
  Sex: Female
  Weight: 52 kg

DRUGS (1)
  1. TRIMETHOPRIM [Suspect]
     Active Substance: TRIMETHOPRIM
     Indication: Urinary tract infection
     Dosage: 200MG TWICE A DAY, BATCH NO : : 21983; GTIN: 05015201008804, 400 MG DAILY
     Route: 065
     Dates: start: 20250605

REACTIONS (4)
  - Chills [Recovered/Resolved]
  - Arthralgia [Recovering/Resolving]
  - Myalgia [Recovering/Resolving]
  - Paraesthesia [Recovering/Resolving]

NARRATIVE: CASE EVENT DATE: 20250605
